FAERS Safety Report 8819478 (Version 1)
Quarter: 2012Q4

REPORT INFORMATION
  Report Type: 
  Country: DE (occurrence: DE)
  Receive Date: 20120930
  Receipt Date: 20120930
  Transmission Date: 20130627
  Serious: Yes (Other)
  Sender: FDA-Public Use
  Company Number: DE-BRISTOL-MYERS SQUIBB COMPANY-16926776

PATIENT

DRUGS (1)
  1. ABILIFY TABS [Suspect]

REACTIONS (2)
  - Loss of consciousness [Unknown]
  - Gastrostomy tube insertion [Unknown]
